FAERS Safety Report 12087065 (Version 1)
Quarter: 2016Q1

REPORT INFORMATION
  Report Type: Spontaneous
  Country: US (occurrence: US)
  Receive Date: 20160217
  Receipt Date: 20160217
  Transmission Date: 20160526
  Serious: No
  Sender: FDA-Public Use
  Company Number: US-ALLERGAN-1506719US

PATIENT
  Sex: Female
  Weight: 47.62 kg

DRUGS (2)
  1. SIMVASTATIN. [Concomitant]
     Active Substance: SIMVASTATIN
     Indication: BLOOD CHOLESTEROL
     Dosage: UNK UNK, UNKNOWN
     Route: 065
  2. RESTASIS [Suspect]
     Active Substance: CYCLOSPORINE
     Indication: DRY EYE
     Dosage: UNK, DROPS BID
     Route: 047

REACTIONS (3)
  - Lip dry [Not Recovered/Not Resolved]
  - Dry mouth [Recovering/Resolving]
  - Insomnia [Not Recovered/Not Resolved]
